FAERS Safety Report 14027298 (Version 1)
Quarter: 2017Q3

REPORT INFORMATION
  Report Type: Spontaneous
  Country: US (occurrence: US)
  Receive Date: 20170929
  Receipt Date: 20170929
  Transmission Date: 20171128
  Serious: No
  Sender: FDA-Public Use
  Company Number: US-NOVEN PHARMACEUTICALS, INC.-US2016002882

PATIENT

DRUGS (5)
  1. COMBIPATCH [Suspect]
     Active Substance: ESTRADIOL\NORETHINDRONE ACETATE
     Indication: HOT FLUSH
     Dosage: 50/140 MG, 2/WK
     Route: 062
     Dates: start: 2001, end: 201605
  2. COMBIPATCH [Suspect]
     Active Substance: ESTRADIOL\NORETHINDRONE ACETATE
     Dosage: QUARTER OF THE PATCH, 1/WEEK
     Route: 062
     Dates: start: 20160810, end: 201611
  3. COMBIPATCH [Suspect]
     Active Substance: ESTRADIOL\NORETHINDRONE ACETATE
     Indication: HYPERHIDROSIS
     Dosage: USING HALF CUT PATCH, UNKNOWN
     Route: 062
     Dates: start: 201605, end: 20160809
  4. COMBIPATCH [Suspect]
     Active Substance: ESTRADIOL\NORETHINDRONE ACETATE
     Dosage: APPLYING ONE EIGHTH PATCH ON ONE SIDE AND QUARTER PATCH ON THE OTHER SIDE, UNKNOWN
     Route: 062
     Dates: start: 2016
  5. COMBIPATCH [Suspect]
     Active Substance: ESTRADIOL\NORETHINDRONE ACETATE
     Dosage: ONE EIGHTH OF THE PATCH, UNKNOWN
     Route: 062
     Dates: start: 201611, end: 2016

REACTIONS (4)
  - Off label use [Unknown]
  - Wrong technique in product usage process [Not Recovered/Not Resolved]
  - Inappropriate schedule of drug administration [Unknown]
  - Hot flush [Unknown]

NARRATIVE: CASE EVENT DATE: 201605
